FAERS Safety Report 16795178 (Version 1)
Quarter: 2019Q3

REPORT INFORMATION
  Report Type: Spontaneous
  Country: US (occurrence: US)
  Receive Date: 20190911
  Receipt Date: 20190911
  Transmission Date: 20191005
  Serious: No
  Sender: FDA-Public Use
  Company Number: US-BEH-2019106008

PATIENT
  Age: 70 Year
  Sex: Female

DRUGS (1)
  1. HIZENTRA [Suspect]
     Active Substance: HUMAN IMMUNOGLOBULIN G
     Indication: IMMUNODEFICIENCY COMMON VARIABLE
     Dosage: 12 GRAM, QW
     Route: 058
     Dates: start: 20190723

REACTIONS (9)
  - Pruritus [Unknown]
  - Agitation [Unknown]
  - Flushing [Unknown]
  - Oedema peripheral [Unknown]
  - Pain in extremity [Unknown]
  - Infusion site erythema [Unknown]
  - Infusion site pain [Unknown]
  - Pruritus generalised [Unknown]
  - Feeling hot [Unknown]

NARRATIVE: CASE EVENT DATE: 20190819
